FAERS Safety Report 8924716 (Version 2)
Quarter: 2012Q4

REPORT INFORMATION
  Report Type: 
  Country: US (occurrence: US)
  Receive Date: 20121126
  Receipt Date: 20121210
  Transmission Date: 20130627
  Serious: Yes (Death, Hospitalization)
  Sender: FDA-Public Use
  Company Number: US-B.I. PHARMACEUTICALS,INC./RIDGEFIELD-2012-BI-00646BP

PATIENT
  Age: 89 Year
  Sex: Male

DRUGS (6)
  1. PRADAXA [Suspect]
     Indication: ATRIAL FIBRILLATION
     Dosage: 225 mg
     Route: 048
  2. PRADAXA [Suspect]
     Dosage: 225 mg
     Route: 048
  3. CLARITHROMYCIN [Suspect]
  4. INSULIN [Concomitant]
     Indication: TYPE 1 DIABETES MELLITUS
  5. ASPIRIN [Concomitant]
     Dosage: 81 mg
  6. MULTIPLE MEDICATIONS [Concomitant]

REACTIONS (4)
  - Cardiac tamponade [Fatal]
  - Pericardial haemorrhage [Fatal]
  - Pneumonia [Fatal]
  - Drug interaction [Unknown]
